FAERS Safety Report 13225455 (Version 1)
Quarter: 2017Q1

REPORT INFORMATION
  Report Type: Spontaneous
  Country: NO (occurrence: NO)
  Receive Date: 20170213
  Receipt Date: 20170213
  Transmission Date: 20170428
  Serious: Yes (Other)
  Sender: FDA-Public Use
  Company Number: NO-SUN PHARMACEUTICAL INDUSTRIES LTD-2017R1-133303

PATIENT
  Age: 64 Year
  Sex: Female

DRUGS (1)
  1. METFORMIN [Suspect]
     Active Substance: METFORMIN HYDROCHLORIDE
     Indication: PRODUCT USED FOR UNKNOWN INDICATION
     Dosage: UNK
     Route: 065

REACTIONS (7)
  - Acute kidney injury [Recovered/Resolved with Sequelae]
  - Mental impairment [Unknown]
  - Cardiac arrest [Recovered/Resolved with Sequelae]
  - Cerebral infarction [Recovered/Resolved with Sequelae]
  - Amnesia [Unknown]
  - Language disorder [Unknown]
  - Lactic acidosis [Recovered/Resolved with Sequelae]
